FAERS Safety Report 17030728 (Version 5)
Quarter: 2021Q2

REPORT INFORMATION
  Report Type: Spontaneous
  Country: IN (occurrence: IN)
  Receive Date: 20191114
  Receipt Date: 20210416
  Transmission Date: 20210716
  Serious: Yes (Other)
  Sender: FDA-Public Use
  Company Number: IN-PFIZER INC-2019489670

PATIENT
  Age: 35 Year
  Sex: Female

DRUGS (4)
  1. LETROZOLE. [Concomitant]
     Active Substance: LETROZOLE
     Dosage: 2.5 MG, 1X/DAY
     Dates: start: 20191005
  2. CALCIMAX FORTE [Concomitant]
     Dosage: 1 G, 1X/DAY
  3. ZOLDRIA [Concomitant]
     Active Substance: ZOLEDRONIC ACID
     Dosage: 4MG IN 50 ML NS IV OVER 15?20 MIN ONCE IN A MONTH FOR 3 MONTHS
  4. PALBACE [Suspect]
     Active Substance: PALBOCICLIB
     Indication: BREAST CANCER METASTATIC
     Dosage: 125 MG, 1X/DAY
     Route: 048
     Dates: start: 20191017

REACTIONS (10)
  - Stomatitis [Unknown]
  - Pain [Unknown]
  - Lip dry [Unknown]
  - Fatigue [Unknown]
  - Thrombosis [Unknown]
  - Mouth ulceration [Unknown]
  - Cough [Unknown]
  - Toothache [Unknown]
  - Neoplasm progression [Unknown]
  - Back pain [Unknown]

NARRATIVE: CASE EVENT DATE: 201912
